FAERS Safety Report 12395040 (Version 1)
Quarter: 2016Q2

REPORT INFORMATION
  Report Type: Spontaneous
  Country: TW (occurrence: TW)
  Receive Date: 20160523
  Receipt Date: 20160523
  Transmission Date: 20160815
  Serious: Yes (Other)
  Sender: FDA-Public Use
  Company Number: TW-AKORN PHARMACEUTICALS-2016AKN00292

PATIENT
  Age: 47 Year
  Sex: Male

DRUGS (5)
  1. SEVOFLURANE. [Concomitant]
     Active Substance: SEVOFLURANE
  2. TRANEXAMIC ACID. [Suspect]
     Active Substance: TRANEXAMIC ACID
     Indication: HAEMOSTASIS
     Dosage: 500 MG, ONCE
     Route: 065
  3. FENTANYL. [Concomitant]
     Active Substance: FENTANYL
     Dosage: 100 ?G, UNK
     Route: 042
  4. CISATRACURIUM. [Concomitant]
     Active Substance: CISATRACURIUM
     Dosage: 16 MG, UNK
     Route: 042
  5. THIAMYLAL [Concomitant]
     Active Substance: THIAMYLAL
     Dosage: 375 MG, UNK
     Route: 042

REACTIONS (4)
  - Oxygen saturation decreased [Recovered/Resolved]
  - Thrombosis [Recovered/Resolved]
  - Bradycardia [Recovered/Resolved]
  - Obstructive airways disorder [Recovered/Resolved]
